FAERS Safety Report 10602879 (Version 2)
Quarter: 2015Q3

REPORT INFORMATION
  Report Type: Spontaneous
  Country: US (occurrence: US)
  Receive Date: 20141124
  Receipt Date: 20150818
  Transmission Date: 20151125
  Serious: No
  Sender: FDA-Public Use
  Company Number: US-GILEAD-2014-0124000

PATIENT
  Age: 16 Year
  Sex: Female

DRUGS (9)
  1. ALDACTONE [Concomitant]
     Active Substance: SPIRONOLACTONE
  2. LETAIRIS [Suspect]
     Active Substance: AMBRISENTAN
     Indication: PULMONARY HYPERTENSION
     Dosage: 10 MG, QD
     Route: 065
     Dates: start: 20130904
  3. CLARITIN [Concomitant]
     Active Substance: LORATADINE
  4. ZOFRAN [Concomitant]
     Active Substance: ONDANSETRON HYDROCHLORIDE
  5. LASIX [Concomitant]
     Active Substance: FUROSEMIDE
  6. COUMADIN [Concomitant]
     Active Substance: WARFARIN SODIUM
  7. ADCIRCA [Concomitant]
     Active Substance: TADALAFIL
  8. PEPCID                             /00305201/ [Concomitant]
     Active Substance: ALUMINUM HYDROXIDE\MAGNESIUM CARBONATE
  9. VELETRI [Concomitant]
     Active Substance: EPOPROSTENOL

REACTIONS (1)
  - Abdominal distension [Unknown]

NARRATIVE: CASE EVENT DATE: 20141110
